FAERS Safety Report 23463387 (Version 3)
Quarter: 2024Q1

REPORT INFORMATION
  Report Type: Spontaneous
  Country: US (occurrence: US)
  Receive Date: 20240131
  Receipt Date: 20240215
  Transmission Date: 20240410
  Serious: Yes (Death, Other)
  Sender: FDA-Public Use
  Company Number: US-BRISTOL-MYERS SQUIBB COMPANY-2024-015746

PATIENT
  Age: 92 Year
  Sex: Female

DRUGS (1)
  1. POMALYST [Suspect]
     Active Substance: POMALIDOMIDE
     Indication: Plasma cell myeloma
     Dosage: 1 CAPSULE DAILY ON MONDAY, WEDNESDAY AND FRIDAYS 12
     Route: 048
     Dates: start: 20231215

REACTIONS (3)
  - Off label use [Unknown]
  - Pleural effusion [Fatal]
  - Hypoxia [Fatal]

NARRATIVE: CASE EVENT DATE: 20240116
